FAERS Safety Report 9884833 (Version 1)
Quarter: 2014Q1

REPORT INFORMATION
  Report Type: Spontaneous
  Country: US (occurrence: None)
  Receive Date: 20140207
  Receipt Date: 20140207
  Transmission Date: 20141002
  Serious: Yes (Hospitalization)
  Sender: FDA-Public Use
  Company Number: None

PATIENT
  Age: 82 Year
  Sex: Male
  Weight: 106 kg

DRUGS (2)
  1. XARELTO 20MG JANSSEN [Suspect]
     Indication: ATRIAL FIBRILLATION
     Dosage: PO DAILY?UNKNWON -TAKING PRIOR TO ADMIT
     Route: 048
  2. XARELTO 20MG JANSSEN [Suspect]
     Indication: DEEP VEIN THROMBOSIS
     Dosage: PO DAILY?UNKNWON -TAKING PRIOR TO ADMIT
     Route: 048

REACTIONS (4)
  - Haematemesis [None]
  - Diarrhoea [None]
  - Rotavirus infection [None]
  - Gastritis erosive [None]
